FAERS Safety Report 9167352 (Version 2)
Quarter: 2013Q2

REPORT INFORMATION
  Report Type: Spontaneous
  Country: FR (occurrence: None)
  Receive Date: 20130304
  Receipt Date: 20130429
  Transmission Date: 20140414
  Serious: Yes (Hospitalization)
  Sender: FDA-Public Use
  Company Number: 7194766

PATIENT
  Age: 65 Year
  Sex: Female

DRUGS (5)
  1. LEVOTHYROX [Suspect]
     Indication: HYPOTHYROIDISM
     Route: 048
     Dates: start: 201208, end: 20130219
  2. PYOSTACINE [Suspect]
     Indication: PYREXIA
     Route: 048
     Dates: start: 201211
  3. ROVAMYCINE [Suspect]
     Indication: PYREXIA
     Route: 048
     Dates: start: 201211
  4. SOLUPRED (PREDNISOLONE SODIUM SULFOBENZOATE) [Concomitant]
  5. HAVLANE (LOPRAZOLAM MESILATE) [Concomitant]

REACTIONS (4)
  - Angioedema [None]
  - Eye irritation [None]
  - Pharyngitis [None]
  - Ear infection [None]
